FAERS Safety Report 15638720 (Version 1)
Quarter: 2018Q4

REPORT INFORMATION
  Report Type: Spontaneous
  Country: US (occurrence: US)
  Receive Date: 20181120
  Receipt Date: 20181120
  Transmission Date: 20190205
  Serious: No
  Sender: FDA-Public Use
  Company Number: US-JNJFOC-20180235386

PATIENT
  Sex: Male

DRUGS (7)
  1. MONASCUS PURPUREUS [Concomitant]
     Active Substance: RED YEAST
  2. ALLOPURINOL. [Concomitant]
     Active Substance: ALLOPURINOL
  3. METOPROLOL. [Concomitant]
     Active Substance: METOPROLOL
  4. FISH OIL [Concomitant]
     Active Substance: FISH OIL
  5. VITAMIN K2 [Concomitant]
     Active Substance: MENAQUINONE 6
  6. IMBRUVICA [Suspect]
     Active Substance: IBRUTINIB
     Indication: CHRONIC LYMPHOCYTIC LEUKAEMIA
     Route: 048
     Dates: start: 20171229
  7. MAGNESIUM OXIDE. [Concomitant]
     Active Substance: MAGNESIUM OXIDE

REACTIONS (2)
  - White blood cell count decreased [Unknown]
  - Headache [Unknown]
